FAERS Safety Report 6360108-0 (Version None)
Quarter: 2009Q3

REPORT INFORMATION
  Report Type: 
  Country: None (occurrence: None)
  Receive Date: 20090917
  Receipt Date: 20090915
  Transmission Date: 20100115
  Serious: Yes (Death)
  Sender: FDA-Public Use
  Company Number: PHEH2009US01905

PATIENT
  Sex: Male

DRUGS (6)
  1. CLOZARIL [Suspect]
     Indication: SCHIZOPHRENIA
     Dosage: 100 MG, QD
     Dates: end: 20080802
  2. TOPAMAX [Concomitant]
  3. ABILIFY [Concomitant]
  4. PAXIL [Concomitant]
  5. PROZAC [Concomitant]
  6. DIET FORMULATIONS FOR TREATMENT OF OBESITY [Concomitant]

REACTIONS (2)
  - BIPOLAR DISORDER [None]
  - CONVULSION [None]
